FAERS Safety Report 20722451 (Version 2)
Quarter: 2022Q2

REPORT INFORMATION
  Report Type: Spontaneous
  Country: US (occurrence: US)
  Receive Date: 20220418
  Receipt Date: 20220428
  Transmission Date: 20220721
  Serious: Yes (Life-Threatening, Hospitalization)
  Sender: FDA-Public Use
  Company Number: US-ALLERGAN-2212417US

PATIENT

DRUGS (1)
  1. VIBERZI [Suspect]
     Active Substance: ELUXADOLINE
     Indication: Gastrointestinal disorder
     Dosage: UNK

REACTIONS (3)
  - Pancreatitis chronic [Not Recovered/Not Resolved]
  - Pain [Unknown]
  - Contraindicated product administered [Unknown]
